FAERS Safety Report 4829548-2 (Version None)
Quarter: 2005Q4

REPORT INFORMATION
  Report Type: 
  Country: None (occurrence: None)
  Receive Date: 20051116
  Receipt Date: 20051110
  Transmission Date: 20060501
  Serious: Yes (Other)
  Sender: FDA-Public Use
  Company Number: BR-JNJFOC-20051101173

PATIENT
  Age: 52 Year
  Sex: Male

DRUGS (3)
  1. TYLENOL (CAPLET) [Suspect]
  2. TYLENOL (CAPLET) [Suspect]
     Indication: GASTROINTESTINAL PAIN
  3. BUSCOPAN [Suspect]
     Indication: GASTROINTESTINAL PAIN
     Route: 042

REACTIONS (2)
  - CONVULSION [None]
  - PYREXIA [None]
